FAERS Safety Report 18118505 (Version 6)
Quarter: 2020Q4

REPORT INFORMATION
  Report Type: Spontaneous
  Country: JP (occurrence: JP)
  Receive Date: 20200806
  Receipt Date: 20201204
  Transmission Date: 20210113
  Serious: Yes (Hospitalization, Other)
  Sender: FDA-Public Use
  Company Number: JP-GLAXOSMITHKLINE-JP2020149154

PATIENT
  Age: 7 Year
  Sex: Male
  Weight: 23.6 kg

DRUGS (5)
  1. LORATADINE OD TABLETS [Concomitant]
     Dosage: UNK
  2. PHENOL AND ZINC OXIDE LINIMENT [Concomitant]
     Dosage: UNK
  3. VALTREX [Suspect]
     Active Substance: VALACYCLOVIR HYDROCHLORIDE
     Indication: VARICELLA
     Dosage: 300 MG, TID
     Route: 048
     Dates: start: 20200729, end: 20200729
  4. ALMETA OINTMENT [Concomitant]
     Dosage: UNK
  5. RINDERON-V OINTMENT [Concomitant]
     Dosage: UNK

REACTIONS (16)
  - Renal impairment [Recovering/Resolving]
  - Blood creatine increased [Recovered/Resolved]
  - Renal disorder [Recovering/Resolving]
  - Altered state of consciousness [Recovered/Resolved]
  - Dysphagia [Recovered/Resolved]
  - Abdominal pain [Recovered/Resolved]
  - Asthenia [Recovered/Resolved]
  - Neuropsychiatric symptoms [Unknown]
  - Hypoglycaemia [Recovered/Resolved]
  - Dysuria [Recovered/Resolved]
  - Vomiting [Recovered/Resolved]
  - Fluid intake reduced [Recovered/Resolved]
  - Dehydration [Recovered/Resolved]
  - Depressed level of consciousness [Recovering/Resolving]
  - Renal tubular disorder [Recovered/Resolved]
  - Blood urea increased [Recovered/Resolved]

NARRATIVE: CASE EVENT DATE: 20200730
